FAERS Safety Report 5075846-X (Version None)
Quarter: 2006Q3

REPORT INFORMATION
  Report Type: 
  Country: None (occurrence: None)
  Receive Date: 20060809
  Receipt Date: 20060112
  Transmission Date: 20061208
  Serious: No
  Sender: FDA-Public Use
  Company Number: US-AMGEN-KDL165121

PATIENT
  Age: 63 Year
  Sex: Female

DRUGS (1)
  1. PROCRIT [Suspect]
     Indication: MYELODYSPLASTIC SYNDROME

REACTIONS (2)
  - MUSCLE SPASMS [None]
  - PARAESTHESIA [None]
